FAERS Safety Report 9275238 (Version 1)
Quarter: 2013Q2

REPORT INFORMATION
  Report Type: Spontaneous
  Country: US (occurrence: None)
  Receive Date: 20130501
  Receipt Date: 20130501
  Transmission Date: 20140414
  Serious: No
  Sender: FDA-Public Use
  Company Number: None

PATIENT
  Age: 56 Year
  Sex: Male
  Weight: 82.56 kg

DRUGS (1)
  1. CIALIS 5MG ELI LILLY [Suspect]
     Indication: BENIGN PROSTATIC HYPERPLASIA
     Dosage: 5MG  1 DAY  PO
     Route: 048
     Dates: start: 20120623, end: 20130215

REACTIONS (4)
  - Tinnitus [None]
  - Ocular hyperaemia [None]
  - Eye pruritus [None]
  - Eye irritation [None]
